FAERS Safety Report 9124948 (Version 2)
Quarter: 2013Q1

REPORT INFORMATION
  Report Type: Spontaneous
  Country: US (occurrence: US)
  Receive Date: 20130121
  Receipt Date: 20130304
  Transmission Date: 20140127
  Serious: Yes (Other)
  Sender: FDA-Public Use
  Company Number: US-BAYER-2013-006645

PATIENT
  Age: 70 Year
  Sex: Male
  Weight: 68 kg

DRUGS (15)
  1. STIVARGA [Suspect]
     Indication: COLORECTAL CANCER METASTATIC
     Dosage: DAILY DOSE 160 MG
     Dates: start: 20121127
  2. STIVARGA [Suspect]
     Indication: COLORECTAL CANCER METASTATIC
     Dosage: DAILY DOSE 120 MG (3 TABLETS)
     Route: 048
     Dates: start: 20130103
  3. MS CONTIN [Concomitant]
     Indication: PELVIC PAIN
  4. CELEXA [Concomitant]
     Dosage: 20 MG, QD
     Route: 048
  5. FOLFIRI [Concomitant]
  6. AFLIBERCEPT [Concomitant]
  7. XYLOCAINE [Concomitant]
     Dosage: 5 ML 30 MIN PRIOR TO EATING
  8. RITALIN [Concomitant]
     Dosage: 5 MG, BID
     Route: 048
  9. SODIUM FLUORIDE [Concomitant]
     Dosage: 1 OZ INTO MOUTH 3 TIMES PER DAY AFTER MEALS
  10. PRILOSEC [Concomitant]
     Dosage: 20 MG, QD
     Route: 048
  11. OXYIR [Concomitant]
     Dosage: 5 MG, 1 TABLET EVERY 2 HOURS
     Route: 048
  12. ZOFRAN [Concomitant]
     Dosage: 8 MG, TID
  13. SENOKOT S [Concomitant]
     Indication: CONSTIPATION
  14. AMBIEN [Concomitant]
     Dosage: 10 MG - 0.5 TABLET AT BEDTIME
     Route: 048
  15. IMODIUM A-D [Concomitant]
     Dosage: 2 MG
     Route: 048

REACTIONS (9)
  - Metastasis [None]
  - Mucosal inflammation [Recovering/Resolving]
  - Decreased appetite [None]
  - Dehydration [None]
  - Stomatitis [Recovering/Resolving]
  - Fatigue [None]
  - Rash [Recovered/Resolved]
  - Pelvic pain [None]
  - Performance status decreased [None]
